FAERS Safety Report 18273493 (Version 3)
Quarter: 2020Q4

REPORT INFORMATION
  Report Type: Spontaneous
  Country: IN (occurrence: IN)
  Receive Date: 20200916
  Receipt Date: 20201202
  Transmission Date: 20210113
  Serious: Yes (Other)
  Sender: FDA-Public Use
  Company Number: IN-PFIZER INC-2020354613

PATIENT
  Age: 57 Year
  Sex: Male

DRUGS (5)
  1. LORBRIQUA [Suspect]
     Active Substance: LORLATINIB
     Dosage: 100 MG, 1X/DAY
     Route: 048
  2. COENZYME Q10 [Concomitant]
     Active Substance: DIETARY SUPPLEMENT\UBIDECARENONE
     Dosage: UNK
  3. LORBRIQUA [Suspect]
     Active Substance: LORLATINIB
     Dosage: 75 MG, 1X/DAY
     Route: 048
     Dates: start: 20201127
  4. TAXIM O [Concomitant]
     Dosage: UNK
  5. ADCUMIN [Concomitant]
     Dosage: UNK

REACTIONS (1)
  - Brain oedema [Unknown]
